FAERS Safety Report 6648897-9 (Version None)
Quarter: 2010Q1

REPORT INFORMATION
  Report Type: 
  Country: None (occurrence: None)
  Receive Date: 20100309
  Receipt Date: 20091230
  Transmission Date: 20100710
  Serious: No
  Sender: FDA-Public Use
  Company Number: 2010SP000813

PATIENT
  Age: 49 Year
  Sex: Female
  Weight: 99.7913 kg

DRUGS (5)
  1. SAPHRIS [Suspect]
     Indication: SCHIZOPHRENIA
     Dosage: 5 MG; QD
     Dates: start: 20091201
  2. SAPHRIS [Suspect]
     Indication: SCHIZOPHRENIA
     Dosage: 5 MG; QD
     Dates: start: 20091223
  3. KLONOPIN [Concomitant]
  4. LODRANE [Concomitant]
  5. XANAX [Concomitant]

REACTIONS (1)
  - TREMOR [None]
